FAERS Safety Report 10327145 (Version 2)
Quarter: 2014Q3

REPORT INFORMATION
  Report Type: Report from Study
  Country: US (occurrence: US)
  Receive Date: 20140720
  Receipt Date: 20140720
  Transmission Date: 20150326
  Serious: Yes (Other)
  Sender: FDA-Public Use
  Company Number: PHEH2014US012012

PATIENT
  Sex: Female

DRUGS (1)
  1. GILENYA [Suspect]
     Active Substance: FINGOLIMOD HYDROCHLORIDE
     Indication: MULTIPLE SCLEROSIS
     Dosage: 0.5 MG, QD
     Route: 048
     Dates: start: 20140506

REACTIONS (5)
  - Nuclear magnetic resonance imaging spinal abnormal [Unknown]
  - Hypoaesthesia [Recovering/Resolving]
  - Asthenia [Unknown]
  - Muscle spasms [Unknown]
  - Paraesthesia [Recovering/Resolving]
